FAERS Safety Report 25884271 (Version 2)
Quarter: 2025Q4

REPORT INFORMATION
  Report Type: Spontaneous
  Country: MX (occurrence: MX)
  Receive Date: 20251006
  Receipt Date: 20251023
  Transmission Date: 20260118
  Serious: Yes (Other)
  Sender: SANDOZ
  Company Number: MX-002147023-NVSC2025MX154445

PATIENT
  Age: 85 Year
  Sex: Male

DRUGS (2)
  1. EXELON [Suspect]
     Active Substance: RIVASTIGMINE TARTRATE
     Indication: Product used for unknown indication
     Dosage: 1 DOSAGE FORM (PATCHES) (EVERY THIRD DAY)
     Route: 062
     Dates: start: 20250104
  2. EXELON [Suspect]
     Active Substance: RIVASTIGMINE TARTRATE
     Dosage: 2 DOSAGE FORM (PATCHES) (EVERY THIRD DAY)
     Route: 062

REACTIONS (6)
  - Dementia [Unknown]
  - Abnormal behaviour [Unknown]
  - Erythema [Recovered/Resolved]
  - Inappropriate schedule of product administration [Unknown]
  - Product availability issue [Unknown]
  - Incorrect product formulation administered [Unknown]
